FAERS Safety Report 8076035-7 (Version None)
Quarter: 2012Q1

REPORT INFORMATION
  Report Type: 
  Country: None (occurrence: None)
  Receive Date: 20120127
  Receipt Date: 20110519
  Transmission Date: 20120608
  Serious: No
  Sender: FDA-Public Use
  Company Number: US-GLAXOSMITHKLINE-A0928630A

PATIENT
  Age: 58 Year
  Sex: Female

DRUGS (3)
  1. WELLBUTRIN [Suspect]
     Indication: ANXIETY
     Dosage: 160MG PER DAY
     Route: 048
     Dates: start: 20110315, end: 20110411
  2. LEXAPRO [Suspect]
     Indication: ANXIETY
     Dosage: 10MG PER DAY
     Route: 048
     Dates: start: 20110412, end: 20110507
  3. LEXAPRO [Suspect]
     Dosage: 5MG PER DAY
     Route: 048
     Dates: start: 20110508, end: 20110511

REACTIONS (4)
  - DYSPEPSIA [None]
  - SENSATION OF FOREIGN BODY [None]
  - GASTROOESOPHAGEAL REFLUX DISEASE [None]
  - BACK PAIN [None]
